FAERS Safety Report 21770272 (Version 1)
Quarter: 2022Q4

REPORT INFORMATION
  Report Type: Spontaneous
  Country: DK (occurrence: DK)
  Receive Date: 20221223
  Receipt Date: 20221223
  Transmission Date: 20230113
  Serious: Yes (Hospitalization)
  Sender: FDA-Public Use
  Company Number: None

PATIENT
  Age: 63 Year
  Sex: Male

DRUGS (2)
  1. CAPECITABINE [Suspect]
     Active Substance: CAPECITABINE
     Indication: Rectal cancer stage III
     Dosage: DOSE REDUCED TO 1500 MG TWICE A DAY IN APR2020 OR MAY2020. STRENGTH: UNKNOWN, DURATION : 5 DAYS, FRE
     Route: 065
     Dates: start: 20200420, end: 202009
  2. OXALIPLATIN [Suspect]
     Active Substance: OXALIPLATIN
     Indication: Rectal cancer stage III
     Dosage: DOSE INTERVAL UNKNOWN, STRENGTH: UNKNOWN, UNIT DOSE : 260 MG, DURATION : 5 MONTH
     Route: 065
     Dates: start: 20200420, end: 202009

REACTIONS (2)
  - Diarrhoea [Recovered/Resolved]
  - Neuropathy peripheral [Recovered/Resolved]

NARRATIVE: CASE EVENT DATE: 20200401
